FAERS Safety Report 6882457-X (Version None)
Quarter: 2010Q3

REPORT INFORMATION
  Report Type: 
  Country: None (occurrence: None)
  Receive Date: 20100728
  Receipt Date: 20100728
  Transmission Date: 20110219
  Serious: Yes (Death)
  Sender: FDA-Public Use
  Company Number: None

PATIENT
  Age: 67 Year
  Sex: Male

DRUGS (2)
  1. LORAZEPAM [Suspect]
     Dosage: 10 ML OTHER IV
     Route: 042
     Dates: start: 20100628, end: 20100629
  2. MORPHINE [Suspect]
     Dosage: 2 MG PRN IV
     Route: 042
     Dates: start: 20100625, end: 20100630

REACTIONS (3)
  - HYPOXIA [None]
  - RESPIRATORY DEPRESSION [None]
  - SEDATION [None]
